FAERS Safety Report 4373383-9 (Version None)
Quarter: 2004Q2

REPORT INFORMATION
  Report Type: 
  Country: None (occurrence: None)
  Receive Date: 20040603
  Receipt Date: 20040527
  Transmission Date: 20050107
  Serious: Yes (Hospitalization, Disabling)
  Sender: FDA-Public Use
  Company Number: TPA2004A00361

PATIENT
  Age: 70 Year
  Sex: Female
  Weight: 71.6683 kg

DRUGS (5)
  1. ACTOS [Suspect]
     Indication: DIABETES MELLITUS NON-INSULIN-DEPENDENT
     Dosage: 30 MG, 1 IN 1 D, PER ORAL
     Route: 048
     Dates: start: 19990101
  2. ACIPHEX (RABEPRAZOLE SODIUM) (20 MILLIGRAM) [Concomitant]
  3. LIPITOR (ATORVASTATIN) (20 MILLIGRAM) [Concomitant]
  4. ZOLOFT [Concomitant]
  5. EVISTA (RALOXIFENE HYDROCHLORIDE) (60 MILLIGRAM) [Concomitant]

REACTIONS (15)
  - ABASIA [None]
  - ABDOMINAL PAIN [None]
  - BACK PAIN [None]
  - BLOOD TRIGLYCERIDES INCREASED [None]
  - CONSTIPATION [None]
  - DIZZINESS [None]
  - EAR INFECTION [None]
  - FALL [None]
  - FLANK PAIN [None]
  - FLATULENCE [None]
  - GROIN PAIN [None]
  - PAIN [None]
  - RENAL ATROPHY [None]
  - SPINAL FRACTURE [None]
  - VASCULAR OCCLUSION [None]
